FAERS Safety Report 15288644 (Version 1)
Quarter: 2018Q3

REPORT INFORMATION
  Report Type: Spontaneous
  Country: US (occurrence: US)
  Receive Date: 20180802
  Receipt Date: 20180802
  Transmission Date: 20181010
  Serious: Yes (Other)
  Sender: FDA-Public Use
  Company Number: None

PATIENT
  Age: 31 Year
  Sex: Female
  Weight: 119 kg

DRUGS (1)
  1. GLATIRAMER ACETATE 40 MG/ML [Suspect]
     Active Substance: GLATIRAMER ACETATE
     Indication: MULTIPLE SCLEROSIS
     Route: 058

REACTIONS (2)
  - Injection site urticaria [None]
  - Injection site pain [None]

NARRATIVE: CASE EVENT DATE: 20180707
